FAERS Safety Report 4483642-7 (Version None)
Quarter: 2004Q4

REPORT INFORMATION
  Report Type: 
  Country: None (occurrence: None)
  Receive Date: 20041022
  Receipt Date: 20041022
  Transmission Date: 20050328
  Serious: Yes (Hospitalization)
  Sender: FDA-Public Use
  Company Number: None

PATIENT
  Age: 65 Year
  Sex: Male
  Weight: 26.3 kg

DRUGS (2)
  1. DOXIL [Suspect]
     Indication: MULTIPLE MYELOMA
     Dosage: 80 MG Q 28 D- IV
     Route: 042
     Dates: start: 20041008
  2. THALIDOMIDE (CELGENE) 50 MG Q DAY [Suspect]
     Indication: MULTIPLE MYELOMA
     Dosage: 50 MG Q D- PO
     Route: 048
     Dates: start: 20041008, end: 20041018

REACTIONS (5)
  - BLOOD CREATINE INCREASED [None]
  - BLOOD UREA INCREASED [None]
  - DEHYDRATION [None]
  - DIALYSIS [None]
  - RENAL FAILURE [None]
